FAERS Safety Report 7393055-6 (Version None)
Quarter: 2011Q2

REPORT INFORMATION
  Report Type: 
  Country: None (occurrence: None)
  Receive Date: 20110404
  Receipt Date: 20110323
  Transmission Date: 20111010
  Serious: Yes (Hospitalization, Other)
  Sender: FDA-Public Use
  Company Number: DK-WATSON-2011-02713

PATIENT
  Age: 78 Year
  Sex: Female

DRUGS (3)
  1. PREDNISOLONE [Suspect]
     Indication: MUSCULOSKELETAL STIFFNESS
  2. SULFAMETHOXAZOLE AND TRIMETHOPRIM [Suspect]
     Indication: INFECTION
     Dosage: UNK
  3. PREDNISOLONE [Suspect]
     Indication: MYALGIA
     Dosage: 50 MG X 5 DAYS

REACTIONS (5)
  - ANAEMIA [None]
  - DIARRHOEA [None]
  - MALACOPLAKIA GASTROINTESTINAL [None]
  - MALAISE [None]
  - ECZEMA [None]
